FAERS Safety Report 5495500-X (Version None)
Quarter: 2007Q4

REPORT INFORMATION
  Report Type: 
  Country: None (occurrence: None)
  Receive Date: 20071023
  Receipt Date: 20071009
  Transmission Date: 20080405
  Serious: Yes (Life-Threatening, Hospitalization)
  Sender: FDA-Public Use
  Company Number: 2007JP004602

PATIENT
  Age: 56 Year
  Sex: Female

DRUGS (8)
  1. FUNGUARD(MICAFUNGIN) INJECTION [Suspect]
     Dosage: IV DRIP
     Route: 041
     Dates: start: 20061223, end: 20061227
  2. INSULIN [Concomitant]
  3. HEPARIN [Concomitant]
  4. AMPHOTERICIN B [Concomitant]
  5. DOPAMINE HCL [Concomitant]
  6. DOBUTAMINE (DOBUTAMINE) [Concomitant]
  7. STEROID FORMULATION UNKNOWN [Concomitant]
  8. SIVELESTAT (SIVELESTAT) [Concomitant]

REACTIONS (6)
  - CONDITION AGGRAVATED [None]
  - DUODENAL ULCER HAEMORRHAGE [None]
  - HEPARIN-INDUCED THROMBOCYTOPENIA [None]
  - MENTAL DISORDER [None]
  - PLATELET COUNT DECREASED [None]
  - RASH [None]
